FAERS Safety Report 7072541-2 (Version None)
Quarter: 2010Q4

REPORT INFORMATION
  Report Type: 
  Country: None (occurrence: None)
  Receive Date: 20101029
  Receipt Date: 20100205
  Transmission Date: 20110411
  Serious: No
  Sender: FDA-Public Use
  Company Number: A0843608A

PATIENT
  Age: 88 Year
  Sex: Female

DRUGS (1)
  1. ADVAIR DISKUS 100/50 [Suspect]
     Indication: WHEEZING
     Route: 055
     Dates: start: 20090101

REACTIONS (3)
  - CHILLS [None]
  - DYSPNOEA [None]
  - FEAR [None]
